FAERS Safety Report 21525546 (Version 1)
Quarter: 2022Q4

REPORT INFORMATION
  Report Type: Spontaneous
  Country: US (occurrence: None)
  Receive Date: 20221028
  Receipt Date: 20221028
  Transmission Date: 20230112
  Serious: Yes (Hospitalization)
  Sender: FDA-Public Use
  Company Number: None

PATIENT

DRUGS (2)
  1. ELIQUIS [Suspect]
     Active Substance: APIXABAN
  2. BRILINTA [Suspect]
     Active Substance: TICAGRELOR

REACTIONS (4)
  - Blood loss anaemia [None]
  - Gastrointestinal haemorrhage [None]
  - White blood cell count increased [None]
  - Gastric mucosal lesion [None]

NARRATIVE: CASE EVENT DATE: 20210818
